FAERS Safety Report 4310487-0 (Version None)
Quarter: 2004Q1

REPORT INFORMATION
  Report Type: 
  Country: None (occurrence: None)
  Receive Date: 20040301
  Receipt Date: 20031110
  Transmission Date: 20041129
  Serious: No
  Sender: FDA-Public Use
  Company Number: WAES 0311USA01044

PATIENT
  Age: 60 Year
  Sex: Female
  Weight: 87.0906 kg

DRUGS (7)
  1. ZETIA [Suspect]
     Indication: HYPERLIPIDAEMIA
     Dosage: 10 MG/DAILY/PO
     Route: 048
     Dates: start: 20030909, end: 20001018
  2. ALLEGRA [Concomitant]
  3. BEXTRA [Concomitant]
  4. COUMADIN [Concomitant]
  5. LIPITOR [Concomitant]
  6. LOPRESSOR [Concomitant]
  7. ASPIRIN [Concomitant]

REACTIONS (1)
  - CONTUSION [None]
